FAERS Safety Report 18656469 (Version 1)
Quarter: 2020Q4

REPORT INFORMATION
  Report Type: Spontaneous
  Country: US (occurrence: US)
  Receive Date: 20201223
  Receipt Date: 20201223
  Transmission Date: 20210114
  Serious: Yes (Other)
  Sender: FDA-Public Use
  Company Number: US-PFIZER INC-2020501447

PATIENT
  Age: 38 Year
  Sex: Male

DRUGS (4)
  1. XELJANZ XR [Suspect]
     Active Substance: TOFACITINIB CITRATE
     Indication: SPONDYLOARTHROPATHY
  2. XELJANZ XR [Suspect]
     Active Substance: TOFACITINIB CITRATE
     Indication: SPINAL OSTEOARTHRITIS
     Dosage: 11 MG, 1X/DAY
     Dates: start: 20201209
  3. XELJANZ XR [Suspect]
     Active Substance: TOFACITINIB CITRATE
     Indication: PSORIASIS
  4. XELJANZ XR [Suspect]
     Active Substance: TOFACITINIB CITRATE
     Indication: DACTYLITIS

REACTIONS (2)
  - Mental impairment [Unknown]
  - Off label use [Unknown]
